FAERS Safety Report 16323232 (Version 2)
Quarter: 2019Q2

REPORT INFORMATION
  Report Type: Spontaneous
  Country: DE (occurrence: DE)
  Receive Date: 20190517
  Receipt Date: 20190528
  Transmission Date: 20190711
  Serious: Yes (Other)
  Sender: FDA-Public Use
  Company Number: DE-BRISTOL-MYERS SQUIBB COMPANY-BMS-2019-044759

PATIENT
  Age: 58 Year
  Sex: Male

DRUGS (3)
  1. OPDIVO [Suspect]
     Active Substance: NIVOLUMAB
     Indication: METASTATIC MALIGNANT MELANOMA
     Dosage: 1 MILLIGRAM/KILOGRAM
     Route: 065
     Dates: start: 201608
  2. YERVOY [Suspect]
     Active Substance: IPILIMUMAB
     Indication: METASTATIC MALIGNANT MELANOMA
     Dosage: 3 MILLIGRAM/KILOGRAM
     Route: 065
     Dates: start: 201608
  3. MOMETASONE FUROATE. [Concomitant]
     Active Substance: MOMETASONE FUROATE
     Indication: PRODUCT USED FOR UNKNOWN INDICATION
     Dosage: UNK
     Route: 065

REACTIONS (23)
  - Adrenal insufficiency [Unknown]
  - Pubis fracture [Unknown]
  - Alopecia [Unknown]
  - Rash [Unknown]
  - Macule [Unknown]
  - Acetabulum fracture [Unknown]
  - Night sweats [Unknown]
  - Colitis [Unknown]
  - Leukopenia [Unknown]
  - Adrenocortical insufficiency acute [Unknown]
  - Hot flush [Unknown]
  - Pruritus [Unknown]
  - Mucosal inflammation [Unknown]
  - Fall [Unknown]
  - Erythema [Unknown]
  - Body temperature increased [Unknown]
  - Skin plaque [Unknown]
  - Fatigue [Unknown]
  - Radiation skin injury [Unknown]
  - Papule [Unknown]
  - Ear pain [Unknown]
  - Stomatitis [Unknown]
  - Weight decreased [Unknown]
